FAERS Safety Report 8613073-7 (Version None)
Quarter: 2012Q3

REPORT INFORMATION
  Report Type: 
  Country: None (occurrence: None)
  Receive Date: 20120822
  Receipt Date: 20120816
  Transmission Date: 20120928
  Serious: Yes (Other)
  Sender: FDA-Public Use
  Company Number: US-UCBSA-063860

PATIENT
  Age: 34 Year
  Sex: Female

DRUGS (1)
  1. CIMZIA [Suspect]
     Indication: CROHN'S DISEASE
     Dosage: STRENGHT: 200 MG KIT (2 PFS/BOX)
     Route: 058
     Dates: start: 20120322

REACTIONS (2)
  - MATERNAL EXPOSURE DURING PREGNANCY [None]
  - ALOPECIA [None]
